FAERS Safety Report 8472604 (Version 3)
Quarter: 2013Q1

REPORT INFORMATION
  Report Type: Spontaneous
  Country: US (occurrence: US)
  Receive Date: 20120322
  Receipt Date: 20130319
  Transmission Date: 20140127
  Serious: Yes (Other)
  Sender: FDA-Public Use
  Company Number: US-JNJFOC-20120306706

PATIENT
  Age: 68 None
  Sex: Female
  Weight: 110.22 kg

DRUGS (24)
  1. REMICADE [Suspect]
     Indication: RHEUMATOID ARTHRITIS
     Route: 042
     Dates: start: 20091116
  2. REMICADE [Suspect]
     Indication: RHEUMATOID ARTHRITIS
     Route: 042
     Dates: end: 20120119
  3. REMICADE [Suspect]
     Indication: RHEUMATOID ARTHRITIS
     Route: 042
     Dates: start: 2010
  4. POTASSIUM [Concomitant]
     Indication: NUTRITIONAL SUPPLEMENTATION
     Route: 048
  5. PLAVIX [Concomitant]
     Indication: CEREBROVASCULAR ACCIDENT
     Route: 048
     Dates: start: 2007
  6. FAMOTIDINE [Concomitant]
     Indication: GASTROOESOPHAGEAL REFLUX DISEASE
     Route: 048
     Dates: start: 2011
  7. PAXIL [Concomitant]
     Indication: ANXIETY
     Route: 048
  8. PAXIL [Concomitant]
     Indication: DEPRESSION
     Route: 048
  9. PREDNISONE [Concomitant]
     Indication: RHEUMATOID ARTHRITIS
     Route: 048
  10. METHOTREXATE [Concomitant]
     Indication: RHEUMATOID ARTHRITIS
     Dosage: 2.5 MG, 6 TABLETS EVERY MONDAY
     Route: 048
     Dates: start: 2002
  11. METOPROLOL [Concomitant]
     Indication: HYPERTENSION
     Route: 048
  12. FOLBIC [Concomitant]
     Indication: NUTRITIONAL SUPPLEMENTATION
     Dosage: 2 TABLETS AT NOON
     Route: 048
  13. PLAQUENIL [Concomitant]
     Indication: RHEUMATOID ARTHRITIS
     Dosage: AT NOON
     Route: 048
     Dates: start: 1992
  14. VITAMIN D [Concomitant]
     Indication: NUTRITIONAL SUPPLEMENTATION
     Route: 048
  15. CALCIUM [Concomitant]
     Indication: NUTRITIONAL SUPPLEMENTATION
     Route: 048
  16. VESICARE [Concomitant]
     Indication: BLADDER DISORDER
     Route: 048
     Dates: start: 2010
  17. CRESTOR [Concomitant]
     Indication: BLOOD CHOLESTEROL INCREASED
     Route: 048
  18. ASPIRIN [Concomitant]
     Indication: CARDIAC DISORDER
     Route: 048
  19. DULCOLAX [Concomitant]
     Indication: ABNORMAL FAECES
     Route: 048
  20. CELEBREX [Concomitant]
     Indication: PAIN
     Route: 048
  21. FOSAMAX [Concomitant]
     Indication: OSTEOPOROSIS
     Route: 048
  22. FENTANYL [Concomitant]
     Route: 065
  23. VICODIN [Concomitant]
     Indication: PAIN
     Route: 048
  24. FOLIC ACID [Concomitant]
     Route: 065

REACTIONS (11)
  - Chronic obstructive pulmonary disease [Not Recovered/Not Resolved]
  - Urinary tract infection [Unknown]
  - Hearing impaired [Not Recovered/Not Resolved]
  - Blood pressure inadequately controlled [Recovering/Resolving]
  - Cellulitis [Recovered/Resolved]
  - Body height decreased [Not Recovered/Not Resolved]
  - Petechiae [Recovered/Resolved]
  - Malaise [Unknown]
  - Arthralgia [Not Recovered/Not Resolved]
  - Fall [Recovered/Resolved]
  - Weight decreased [Not Recovered/Not Resolved]
